FAERS Safety Report 9689776 (Version 3)
Quarter: 2014Q2

REPORT INFORMATION
  Report Type: Report from Study
  Country: US (occurrence: US)
  Receive Date: 20131115
  Receipt Date: 20140514
  Transmission Date: 20141212
  Serious: Yes (Other)
  Sender: FDA-Public Use
  Company Number: US-ROCHE-1225489

PATIENT
  Sex: Female

DRUGS (4)
  1. RITUXAN [Suspect]
     Indication: MULTIPLE SCLEROSIS
     Route: 041
     Dates: end: 201304
  2. RITUXAN [Suspect]
     Indication: RHEUMATOID ARTHRITIS
  3. RITUXAN [Suspect]
     Indication: SJOGREN^S SYNDROME
  4. ALPRAZOLAM [Concomitant]

REACTIONS (11)
  - Sjogren^s syndrome [Not Recovered/Not Resolved]
  - Alopecia [Not Recovered/Not Resolved]
  - Mental impairment [Not Recovered/Not Resolved]
  - Fatigue [Unknown]
  - Malaise [Unknown]
  - Finger deformity [Recovering/Resolving]
  - Ligament sprain [Not Recovered/Not Resolved]
  - Cough [Not Recovered/Not Resolved]
  - Sinusitis [Unknown]
  - Migraine [Unknown]
  - Dyspnoea [Unknown]
